FAERS Safety Report 7380066-X (Version None)
Quarter: 2011Q1

REPORT INFORMATION
  Report Type: 
  Country: None (occurrence: None)
  Receive Date: 20110324
  Receipt Date: 20110324
  Transmission Date: 20110831
  Serious: No
  Sender: FDA-Public Use
  Company Number: None

PATIENT
  Age: 54 Year
  Sex: Female
  Weight: 58.0604 kg

DRUGS (1)
  1. MOBIC [Suspect]
     Indication: ARTHRITIS
     Dosage: 15MG TABLET ONCE A DAY PO
     Route: 048
     Dates: start: 20110318, end: 20110323

REACTIONS (3)
  - PAIN IN EXTREMITY [None]
  - PAIN [None]
  - NECK PAIN [None]
